FAERS Safety Report 14842289 (Version 4)
Quarter: 2018Q3

REPORT INFORMATION
  Report Type: Spontaneous
  Country: DE (occurrence: DE)
  Receive Date: 20180503
  Receipt Date: 20180717
  Transmission Date: 20181010
  Serious: Yes (Hospitalization)
  Sender: FDA-Public Use
  Company Number: DE-AUROBINDO-AUR-APL-2018-023104

PATIENT
  Age: 79 Year
  Sex: Female

DRUGS (99)
  1. PREGABALIN. [Suspect]
     Active Substance: PREGABALIN
     Indication: PRODUCT USED FOR UNKNOWN INDICATION
     Dosage: 20 MILLIGRAM
     Route: 065
  2. PREGABALIN. [Suspect]
     Active Substance: PREGABALIN
     Dosage: 25 MG, 1?0?1?0
     Route: 065
  3. PREGABALIN. [Suspect]
     Active Substance: PREGABALIN
     Dosage: 25 MG,BID
  4. FENTANYL. [Suspect]
     Active Substance: FENTANYL
     Indication: PRODUCT USED FOR UNKNOWN INDICATION
     Dosage: 100 MICROGRAM, WECHSEL ALLE 3D
     Route: 062
  5. FENTANYL. [Suspect]
     Active Substance: FENTANYL
     Dosage: ()
     Route: 062
  6. FENTANYL. [Suspect]
     Active Substance: FENTANYL
     Route: 065
  7. METAMIZOL                          /06276701/ [Suspect]
     Active Substance: METAMIZOLE
     Indication: PRODUCT USED FOR UNKNOWN INDICATION
     Dosage: 1 GRAM, 1 G, 1?1?1?0
     Route: 065
  8. URAPIDIL [Suspect]
     Active Substance: URAPIDIL
     Dosage: 60 MG, 1?0?1?0 ()
     Route: 065
  9. URAPIDIL [Suspect]
     Active Substance: URAPIDIL
     Dosage: 60 MG,BID
     Route: 065
  10. AMITRIPTYLINE [Suspect]
     Active Substance: AMITRIPTYLINE
     Dosage: ()
     Route: 065
  11. CARBIMAZOLE [Concomitant]
     Active Substance: CARBIMAZOLE
     Dosage: 5 MG, 1?0?0?0
  12. MOVICOL [Concomitant]
     Active Substance: POLYETHYLENE GLYCOL 3350\POTASSIUM CHLORIDE\SODIUM BICARBONATE\SODIUM CHLORIDE
     Indication: PRODUCT USED FOR UNKNOWN INDICATION
     Dosage: UNK, NK MG, 1?1?0?0
     Route: 065
  13. RAMIPRIL. [Suspect]
     Active Substance: RAMIPRIL
     Dosage: 5 MILLIGRAM
     Route: 048
  14. OXYCODONE [Suspect]
     Active Substance: OXYCODONE
     Route: 065
  15. OXYCODONE [Suspect]
     Active Substance: OXYCODONE
     Route: 065
  16. OXYCODONE [Suspect]
     Active Substance: OXYCODONE
     Dosage: 20 MG,BID
     Route: 065
  17. URAPIDIL [Suspect]
     Active Substance: URAPIDIL
     Dosage: 60 MG, 1?0?1?0
     Route: 065
  18. METOPROLOL. [Suspect]
     Active Substance: METOPROLOL
     Route: 048
  19. AMITRIPTYLINE [Suspect]
     Active Substance: AMITRIPTYLINE
     Dosage: 50 MG, 1?0?0.5?0 ()
     Route: 065
  20. AMITRIPTYLINE [Suspect]
     Active Substance: AMITRIPTYLINE
     Dosage: 50 MG, 1?0?0.5?0
     Route: 065
  21. DEKRISTOL [Concomitant]
     Active Substance: CHOLECALCIFEROL
     Route: 065
  22. TORASEMID [Concomitant]
     Active Substance: TORSEMIDE
     Dosage: 5 MG, 1?0?0?0 ()
  23. TORASEMID [Concomitant]
     Active Substance: TORSEMIDE
     Dosage: 5 MG,QD
  24. TORASEMID [Concomitant]
     Active Substance: TORSEMIDE
     Dosage: 5 MG,QD
  25. DULOXETINA                         /01749301/ [Concomitant]
     Active Substance: DULOXETINE
     Indication: PRODUCT USED FOR UNKNOWN INDICATION
     Dosage: 30 MILLIGRAM, 30 MG, 1?0?1?0
     Route: 065
  26. RAMIPRIL. [Suspect]
     Active Substance: RAMIPRIL
     Dosage: 5 MG, 0.5?0?0?0.5 ()
     Route: 048
  27. RAMIPRIL. [Suspect]
     Active Substance: RAMIPRIL
     Dosage: 5 MILLIGRAM
     Route: 048
  28. RAMIPRIL. [Suspect]
     Active Substance: RAMIPRIL
     Dosage: 5 MG, 0.5?0?0?0.5
     Route: 048
  29. OXYCODONE [Suspect]
     Active Substance: OXYCODONE
     Dosage: 20 MG, 1?0?1?0 ()
     Route: 065
  30. OXYCODONE [Suspect]
     Active Substance: OXYCODONE
     Dosage: 20 MG,BID
     Route: 065
  31. METOPROLOL. [Suspect]
     Active Substance: METOPROLOL
     Dosage: 23.75 MG, 1?0?1?0
     Route: 048
  32. METOPROLOL. [Suspect]
     Active Substance: METOPROLOL
     Dosage: UNK ()
  33. AMITRIPTYLINE [Suspect]
     Active Substance: AMITRIPTYLINE
     Indication: PRODUCT USED FOR UNKNOWN INDICATION
     Dosage: 50 MILLIGRAM, 50 MG, 1?0?0.5?0
     Route: 065
  34. AMITRIPTYLINE [Suspect]
     Active Substance: AMITRIPTYLINE
     Dosage: 1?0?0.5?0 : FREQUENCY
     Route: 065
  35. DEKRISTOL [Concomitant]
     Active Substance: CHOLECALCIFEROL
     Indication: PRODUCT USED FOR UNKNOWN INDICATION
     Dosage: UNK, 20000 IE, 1X/WEEK
     Route: 065
  36. TORASEMID [Concomitant]
     Active Substance: TORSEMIDE
     Indication: PRODUCT USED FOR UNKNOWN INDICATION
     Dosage: 5 MILLIGRAM, ONCE A DAY, 5 MG, 1?0?0?0
     Route: 065
  37. SITAGLIPTIN [Concomitant]
     Active Substance: SITAGLIPTIN
     Dosage: 50 MG, 1?0?0?0 ()
  38. SITAGLIPTIN [Concomitant]
     Active Substance: SITAGLIPTIN
     Route: 065
  39. SITAGLIPTIN [Concomitant]
     Active Substance: SITAGLIPTIN
     Route: 065
  40. MOVICOL [Concomitant]
     Active Substance: POLYETHYLENE GLYCOL 3350\POTASSIUM CHLORIDE\SODIUM BICARBONATE\SODIUM CHLORIDE
     Dosage: ()
  41. MOVICOL [Concomitant]
     Active Substance: POLYETHYLENE GLYCOL 3350\POTASSIUM CHLORIDE\SODIUM BICARBONATE\SODIUM CHLORIDE
     Dosage: NK MG, 1?1?0?0 ()
  42. OXYCODONE [Suspect]
     Active Substance: OXYCODONE
     Dosage: 20 MG, 1?0?1?0
     Route: 065
  43. AMLODIPINE [Suspect]
     Active Substance: AMLODIPINE BESYLATE
     Route: 048
  44. FENTANYL. [Suspect]
     Active Substance: FENTANYL
     Dosage: 100 ?G, WECHSEL ALLE 3D ()
     Route: 062
  45. FENTANYL. [Suspect]
     Active Substance: FENTANYL
     Dosage: 100 ?G, WECHSEL ALLE 3D
     Route: 062
  46. METOPROLOL. [Suspect]
     Active Substance: METOPROLOL
     Indication: PRODUCT USED FOR UNKNOWN INDICATION
     Dosage: 23.75 MILLIGRAM, 23.75 MG, 1?0?1?0
     Route: 065
  47. METOPROLOL. [Suspect]
     Active Substance: METOPROLOL
     Dosage: 23.75 MG, 1?0?1?0 ()
     Route: 065
  48. CARBIMAZOLE [Concomitant]
     Active Substance: CARBIMAZOLE
     Indication: PRODUCT USED FOR UNKNOWN INDICATION
     Dosage: 5 MILLIGRAM, ONCE A DAY, 5 MG, 1?0?0?0
     Route: 065
  49. CARBIMAZOLE [Concomitant]
     Active Substance: CARBIMAZOLE
     Route: 065
  50. CARBIMAZOLE [Concomitant]
     Active Substance: CARBIMAZOLE
     Route: 065
  51. TORASEMID [Concomitant]
     Active Substance: TORSEMIDE
     Route: 065
  52. MOVICOL [Concomitant]
     Active Substance: POLYETHYLENE GLYCOL 3350\POTASSIUM CHLORIDE\SODIUM BICARBONATE\SODIUM CHLORIDE
     Dosage: NK MG,BID ()
  53. OXYCODONE [Suspect]
     Active Substance: OXYCODONE
     Indication: PRODUCT USED FOR UNKNOWN INDICATION
     Dosage: 20 MILLIGRAM, TWO TIMES A DAY
     Route: 065
  54. PREGABALIN. [Suspect]
     Active Substance: PREGABALIN
     Route: 065
  55. FENTANYL. [Suspect]
     Active Substance: FENTANYL
     Route: 065
  56. FENTANYL. [Suspect]
     Active Substance: FENTANYL
     Dosage: 100 UG,Q3D
     Route: 062
  57. URAPIDIL [Suspect]
     Active Substance: URAPIDIL
     Indication: PRODUCT USED FOR UNKNOWN INDICATION
     Dosage: 60 MILLIGRAM, 60 MG, 1?0?1?0
     Route: 065
  58. METOPROLOL. [Suspect]
     Active Substance: METOPROLOL
     Route: 048
  59. SIMVASTATIN. [Concomitant]
     Active Substance: SIMVASTATIN
     Indication: PRODUCT USED FOR UNKNOWN INDICATION
     Dosage: 20 MILLIGRAM, 20 MG, 0?0?1?0
     Route: 065
  60. DEKRISTOL [Concomitant]
     Active Substance: CHOLECALCIFEROL
     Dosage: 2000 IU,QW
     Route: 065
  61. DEKRISTOL [Concomitant]
     Active Substance: CHOLECALCIFEROL
     Dosage: 20000 IE, 1X/WEEK
     Route: 065
  62. SITAGLIPTIN [Concomitant]
     Active Substance: SITAGLIPTIN
     Indication: PRODUCT USED FOR UNKNOWN INDICATION
     Dosage: 50 MILLIGRAM, ONCE A DAY, 50 MG, 1?0?0?0
     Route: 065
  63. FENTANYL. [Suspect]
     Active Substance: FENTANYL
     Dosage: 100 UG,Q3D
  64. URAPIDIL [Suspect]
     Active Substance: URAPIDIL
     Route: 065
  65. METOPROLOL. [Suspect]
     Active Substance: METOPROLOL
     Dosage: 23.75 MG, 1?0?1?0
     Route: 048
  66. AMITRIPTYLINE [Suspect]
     Active Substance: AMITRIPTYLINE
     Dosage: 1?0?0.5?0 : FREQUENCY
     Route: 065
  67. AMITRIPTYLINE [Suspect]
     Active Substance: AMITRIPTYLINE
     Dosage: 50 MG,1?0?0.5?0
     Route: 065
  68. PANTOPRAZOL                        /01263201/ [Concomitant]
     Active Substance: PANTOPRAZOLE
     Indication: PRODUCT USED FOR UNKNOWN INDICATION
     Dosage: 40 MILLIGRAM, ONCE A DAY, 40 MG, 1?0?0?0
     Route: 065
  69. TORASEMID [Concomitant]
     Active Substance: TORSEMIDE
     Route: 065
  70. SITAGLIPTIN [Concomitant]
     Active Substance: SITAGLIPTIN
     Dosage: ()
  71. MOVICOL [Concomitant]
     Active Substance: POLYETHYLENE GLYCOL 3350\POTASSIUM CHLORIDE\SODIUM BICARBONATE\SODIUM CHLORIDE
     Dosage: NK MG, 1?1?0?0 ()
  72. RAMIPRIL. [Suspect]
     Active Substance: RAMIPRIL
     Dosage: 2.5 MG, BID
     Route: 048
  73. AMLODIPINE [Suspect]
     Active Substance: AMLODIPINE BESYLATE
     Route: 048
  74. PREGABALIN. [Suspect]
     Active Substance: PREGABALIN
     Dosage: 25 MG,BID
     Route: 065
  75. URAPIDIL [Suspect]
     Active Substance: URAPIDIL
     Dosage: ()
     Route: 065
  76. URAPIDIL [Suspect]
     Active Substance: URAPIDIL
     Route: 065
  77. URAPIDIL [Suspect]
     Active Substance: URAPIDIL
     Dosage: 60 MG,BID
     Route: 065
  78. METOPROLOL. [Suspect]
     Active Substance: METOPROLOL
     Dosage: ()
     Route: 065
  79. METOPROLOL. [Suspect]
     Active Substance: METOPROLOL
     Dosage: 23.75 MG,BID
     Route: 048
  80. DEKRISTOL [Concomitant]
     Active Substance: CHOLECALCIFEROL
     Dosage: ()
  81. CARBIMAZOLE [Concomitant]
     Active Substance: CARBIMAZOLE
     Dosage: 5 MG,QD
     Route: 065
  82. SITAGLIPTIN [Concomitant]
     Active Substance: SITAGLIPTIN
     Dosage: 50 MG,QD
  83. MOVICOL [Concomitant]
     Active Substance: POLYETHYLENE GLYCOL 3350\POTASSIUM CHLORIDE\SODIUM BICARBONATE\SODIUM CHLORIDE
     Dosage: NK MG, 1?1?0?0 ()
  84. RAMIPRIL. [Suspect]
     Active Substance: RAMIPRIL
     Indication: PRODUCT USED FOR UNKNOWN INDICATION
     Dosage: 5 MILLIGRAM, TWO TIMES A DAY
     Route: 065
  85. RAMIPRIL. [Suspect]
     Active Substance: RAMIPRIL
     Dosage: 2.5 MG, BID
     Route: 048
  86. RAMIPRIL. [Suspect]
     Active Substance: RAMIPRIL
     Dosage: UNK ()
  87. AMLODIPINE [Suspect]
     Active Substance: AMLODIPINE BESYLATE
     Indication: PRODUCT USED FOR UNKNOWN INDICATION
     Dosage: 5 MILLIGRAM
     Route: 065
  88. PREGABALIN. [Suspect]
     Active Substance: PREGABALIN
     Dosage: 25 MG, 1?0?1?0 ()
     Route: 065
  89. PREGABALIN. [Suspect]
     Active Substance: PREGABALIN
     Dosage: 50 MILLIGRAM
     Route: 065
  90. URAPIDIL [Suspect]
     Active Substance: URAPIDIL
     Dosage: UNK ()
  91. AMITRIPTYLINE [Suspect]
     Active Substance: AMITRIPTYLINE
     Dosage: 50 MG, 1?0?0.5?0
     Route: 065
  92. DEKRISTOL [Concomitant]
     Active Substance: CHOLECALCIFEROL
     Dosage: 20000 IE, 1X/WEEK ()
  93. DEKRISTOL [Concomitant]
     Active Substance: CHOLECALCIFEROL
     Route: 065
  94. DEKRISTOL [Concomitant]
     Active Substance: CHOLECALCIFEROL
     Dosage: 20000 IE, 1X/WEEK
  95. CARBIMAZOLE [Concomitant]
     Active Substance: CARBIMAZOLE
     Dosage: 5 MG, 1?0?0?0 ()
  96. TORASEMID [Concomitant]
     Active Substance: TORSEMIDE
     Dosage: ()
  97. TORASEMID [Concomitant]
     Active Substance: TORSEMIDE
     Dosage: 5 MG, 1?0?0?0
  98. SITAGLIPTIN [Concomitant]
     Active Substance: SITAGLIPTIN
     Dosage: 50 MG, 1?0?0?0
  99. SITAGLIPTIN [Concomitant]
     Active Substance: SITAGLIPTIN
     Dosage: 50 MG,QD

REACTIONS (4)
  - Dizziness [Unknown]
  - Hypotension [Unknown]
  - Asthenia [Unknown]
  - General physical health deterioration [Unknown]
